FAERS Safety Report 20802005 (Version 1)
Quarter: 2022Q2

REPORT INFORMATION
  Report Type: Spontaneous
  Country: US (occurrence: None)
  Receive Date: 20220506
  Receipt Date: 20220506
  Transmission Date: 20220720
  Serious: No
  Sender: FDA-Public Use
  Company Number: None

PATIENT
  Sex: Male

DRUGS (6)
  1. DEVICE [Suspect]
     Active Substance: DEVICE
     Indication: Hypogammaglobulinaemia
     Dosage: OTHER STRENGTH : 0.2 GM/ML;?OTHER QUANTITY : 20% 8GM;?FREQUENCY : EVERY OTHER WEEK;?
     Route: 042
     Dates: start: 202110
  2. DEVICE [Suspect]
     Active Substance: DEVICE
     Indication: Severe myoclonic epilepsy of infancy
  3. DEVICE [Suspect]
     Active Substance: DEVICE
     Indication: Epilepsy
  4. HIZENTRA [Suspect]
     Active Substance: HUMAN IMMUNOGLOBULIN G
     Indication: Hypogammaglobulinaemia
     Dates: start: 202110
  5. HIZENTRA [Suspect]
     Active Substance: HUMAN IMMUNOGLOBULIN G
     Indication: Severe myoclonic epilepsy of infancy
  6. HIZENTRA [Suspect]
     Active Substance: HUMAN IMMUNOGLOBULIN G
     Indication: Epilepsy

REACTIONS (4)
  - Incorrect dose administered [None]
  - Illness [None]
  - Incorrect product administration duration [None]
  - Device delivery system issue [None]
